FAERS Safety Report 8026259-X (Version None)
Quarter: 2012Q1

REPORT INFORMATION
  Report Type: 
  Country: None (occurrence: None)
  Receive Date: 20120105
  Receipt Date: 20111122
  Transmission Date: 20120608
  Serious: No
  Sender: FDA-Public Use
  Company Number: US-ABBOTT-11P-163-0877306-00

PATIENT
  Sex: Female
  Weight: 70.37 kg

DRUGS (3)
  1. SYNTHROID [Suspect]
     Indication: THYROID DISORDER
  2. COUMADIN [Interacting]
     Indication: CEREBRAL THROMBOSIS
  3. GENOTROPIN [Interacting]
     Indication: HYPOPITUITARISM
     Dates: start: 20090501

REACTIONS (2)
  - BLOOD TEST ABNORMAL [None]
  - DRUG INTERACTION [None]
